FAERS Safety Report 8553251-9 (Version None)
Quarter: 2012Q3

REPORT INFORMATION
  Report Type: 
  Country: None (occurrence: None)
  Receive Date: 20120731
  Receipt Date: 20101222
  Transmission Date: 20120928
  Serious: Yes (Death)
  Sender: FDA-Public Use
  Company Number: US-BAYER-201024907NA

PATIENT
  Age: 15 Year
  Sex: Female
  Weight: 75 kg

DRUGS (7)
  1. WELLBUTRIN XL [Concomitant]
     Dosage: UNK
     Dates: start: 20080201, end: 20080601
  2. DRAMAMINE [Concomitant]
  3. FLUOXETINE HCL [Concomitant]
     Dosage: 10 MG (DAILY DOSE), QD,
     Dates: start: 20080201, end: 20080501
  4. PRILOSEC [Concomitant]
     Indication: GASTRIC DISORDER
  5. YAZ [Suspect]
     Indication: MENORRHAGIA
     Route: 048
     Dates: start: 20080201, end: 20080612
  6. YAZ [Suspect]
     Indication: DYSMENORRHOEA
  7. PROZAC [Concomitant]

REACTIONS (1)
  - PULMONARY EMBOLISM [None]
